FAERS Safety Report 4302862-5 (Version None)
Quarter: 2004Q1

REPORT INFORMATION
  Report Type: 
  Country: None (occurrence: None)
  Receive Date: 20040223
  Receipt Date: 20040223
  Transmission Date: 20041129
  Serious: Yes (Hospitalization)
  Sender: FDA-Public Use
  Company Number: None

PATIENT
  Age: 40 Year
  Sex: Female
  Weight: 68.9 kg

DRUGS (2)
  1. IBUPROFEN [Suspect]
     Indication: HEADACHE
     Dosage: 200 - 400 MG PRN ORAL
     Route: 048
  2. IBUPROFEN [Suspect]
     Indication: NECK PAIN
     Dosage: 200 - 400 MG PRN ORAL
     Route: 048

REACTIONS (3)
  - CIRCULATORY COLLAPSE [None]
  - GASTRIC ULCER [None]
  - UPPER GASTROINTESTINAL HAEMORRHAGE [None]
